FAERS Safety Report 19519204 (Version 1)
Quarter: 2021Q3

REPORT INFORMATION
  Report Type: Spontaneous
  Country: US (occurrence: US)
  Receive Date: 20210712
  Receipt Date: 20210712
  Transmission Date: 20211014
  Serious: No
  Sender: FDA-Public Use
  Company Number: None

PATIENT
  Age: 78 Year
  Sex: Male
  Weight: 62 kg

DRUGS (2)
  1. LISINOPRIL (LISINOPRIL 5MG TAB) [Suspect]
     Active Substance: LISINOPRIL
     Indication: DIABETES MELLITUS
     Route: 011
     Dates: start: 20060915, end: 20210710
  2. LISINOPRIL (LISINOPRIL 5MG TAB) [Suspect]
     Active Substance: LISINOPRIL
     Indication: HYPERTENSION
     Route: 011
     Dates: start: 20060915, end: 20210710

REACTIONS (1)
  - Angioedema [None]

NARRATIVE: CASE EVENT DATE: 20210710
